FAERS Safety Report 16575556 (Version 1)
Quarter: 2019Q3

REPORT INFORMATION
  Report Type: Report from Study
  Country: CZ (occurrence: CZ)
  Receive Date: 20190716
  Receipt Date: 20190716
  Transmission Date: 20191004
  Serious: Yes (Other)
  Sender: FDA-Public Use
  Company Number: CZ-AUROBINDO-AUR-APL-2019-040140

PATIENT

DRUGS (1)
  1. PARACETAMOL TABLET [Suspect]
     Active Substance: ACETAMINOPHEN
     Indication: EAR PAIN
     Dosage: 10 GRAM, DAILY
     Route: 065

REACTIONS (4)
  - Overdose [Unknown]
  - Chest pain [Unknown]
  - Nausea [Unknown]
  - Hepatotoxicity [Unknown]
